FAERS Safety Report 4601367-1 (Version None)
Quarter: 2005Q1

REPORT INFORMATION
  Report Type: 
  Country: None (occurrence: None)
  Receive Date: 20050308
  Receipt Date: 20050224
  Transmission Date: 20050727
  Serious: Yes (Hospitalization, Other)
  Sender: FDA-Public Use
  Company Number: 200511752GDDC

PATIENT
  Age: 65 Year
  Sex: Female

DRUGS (2)
  1. KETEK [Suspect]
     Indication: BRONCHITIS
     Route: 048
     Dates: start: 20050202, end: 20050206
  2. LITHANE [Suspect]
     Indication: BIPOLAR I DISORDER
     Dates: start: 19900101

REACTIONS (3)
  - DRUG INTERACTION [None]
  - METABOLIC ENCEPHALOPATHY [None]
  - THERAPEUTIC AGENT TOXICITY [None]
